FAERS Safety Report 19240385 (Version 1)
Quarter: 2021Q2

REPORT INFORMATION
  Report Type: Spontaneous
  Country: NL (occurrence: NL)
  Receive Date: 20210511
  Receipt Date: 20210511
  Transmission Date: 20210717
  Serious: Yes (Hospitalization)
  Sender: FDA-Public Use
  Company Number: NL-SUN PHARMACEUTICAL INDUSTRIES LTD-2021RR-295702

PATIENT
  Sex: Female
  Weight: 52 kg

DRUGS (1)
  1. ISOTRETINOIN. [Suspect]
     Active Substance: ISOTRETINOIN
     Indication: ACNE
     Dosage: 20 MILLIGRAM, DAILY, 1 X PER DAY 1
     Route: 065
     Dates: start: 202103, end: 20210329

REACTIONS (2)
  - Hyperglycaemia [Unknown]
  - Type 1 diabetes mellitus [Not Recovered/Not Resolved]
